FAERS Safety Report 21461999 (Version 2)
Quarter: 2022Q4

REPORT INFORMATION
  Report Type: Report from Study
  Country: US (occurrence: US)
  Receive Date: 20221015
  Receipt Date: 20221226
  Transmission Date: 20230113
  Serious: Yes (Other)
  Sender: FDA-Public Use
  Company Number: US-ABBVIE-4154615

PATIENT
  Age: 68 Year
  Sex: Male
  Weight: 68.038 kg

DRUGS (7)
  1. DUOPA [Suspect]
     Active Substance: CARBIDOPA\LEVODOPA
     Indication: Parkinson^s disease
     Route: 050
     Dates: start: 20200716
  2. DUOPA [Suspect]
     Active Substance: CARBIDOPA\LEVODOPA
  3. ROPINIROLE HCL ER [Concomitant]
     Indication: Product used for unknown indication
  4. ROPINIROLE HYDROCHLORIDE [Concomitant]
     Active Substance: ROPINIROLE HYDROCHLORIDE
     Indication: Product used for unknown indication
     Dosage: ROPINIROLE HCL ER
  5. NUPLAZID [Concomitant]
     Active Substance: PIMAVANSERIN TARTRATE
     Indication: Product used for unknown indication
  6. RYTARY [Concomitant]
     Active Substance: CARBIDOPA\LEVODOPA
     Indication: Product used for unknown indication
  7. CLONAZEPAM [Concomitant]
     Active Substance: CLONAZEPAM
     Indication: Product used for unknown indication

REACTIONS (2)
  - Animal bite [Recovered/Resolved]
  - Wound [Recovered/Resolved]

NARRATIVE: CASE EVENT DATE: 20220928
